FAERS Safety Report 5548783-1 (Version None)
Quarter: 2007Q4

REPORT INFORMATION
  Report Type: 
  Country: None (occurrence: None)
  Receive Date: 20071211
  Receipt Date: 20071210
  Transmission Date: 20080405
  Serious: Yes (Hospitalization)
  Sender: FDA-Public Use
  Company Number: FR-GENENTECH-249524

PATIENT
  Sex: Female

DRUGS (2)
  1. MABTHERA [Suspect]
     Indication: RHEUMATOID ARTHRITIS
     Route: 042
  2. CYCLOPHOSPHAMIDE [Concomitant]
     Indication: RHEUMATOID ARTHRITIS

REACTIONS (1)
  - SIGMOIDITIS [None]
